FAERS Safety Report 12919779 (Version 4)
Quarter: 2017Q1

REPORT INFORMATION
  Report Type: Spontaneous
  Country: PR (occurrence: US)
  Receive Date: 20161108
  Receipt Date: 20170113
  Transmission Date: 20170428
  Serious: No
  Sender: FDA-Public Use
  Company Number: PR-PFIZER INC-2016514112

PATIENT
  Age: 16 Year
  Sex: Male

DRUGS (5)
  1. METAXALONE. [Suspect]
     Active Substance: METAXALONE
     Indication: INJECTION SITE PAIN
     Dosage: 800 MG, 1X/DAY
     Route: 048
     Dates: start: 20161103, end: 20161103
  2. SKELAXIN [Concomitant]
     Active Substance: METAXALONE
     Indication: MUSCLE RELAXANT THERAPY
     Dosage: 400 MG, 3X/DAY [Q 8 HRS]
     Dates: start: 20161101
  3. METAXALONE. [Suspect]
     Active Substance: METAXALONE
     Indication: MUSCLE RELAXANT THERAPY
     Dosage: 800 MG, 1X/DAY
     Route: 048
     Dates: start: 20161101, end: 20161101
  4. BENADRYL [Concomitant]
     Active Substance: DIPHENHYDRAMINE HYDROCHLORIDE
     Dosage: UNK
     Dates: start: 20161102
  5. BOTOX [Concomitant]
     Active Substance: ONABOTULINUMTOXINA
     Indication: SPASMODIC DYSPHONIA
     Dosage: UNK

REACTIONS (3)
  - Rash [Not Recovered/Not Resolved]
  - Burning sensation [Recovered/Resolved]
  - Pruritus [Recovered/Resolved]

NARRATIVE: CASE EVENT DATE: 20161103
